FAERS Safety Report 24587170 (Version 1)
Quarter: 2024Q4

REPORT INFORMATION
  Report Type: Spontaneous
  Country: RU (occurrence: RU)
  Receive Date: 20241107
  Receipt Date: 20241107
  Transmission Date: 20250115
  Serious: Yes (Other)
  Sender: SERVIER
  Company Number: RU-SERVIER-S24014161

PATIENT

DRUGS (7)
  1. ONCASPAR [Suspect]
     Active Substance: PEGASPARGASE
     Indication: Acute lymphocytic leukaemia
     Dosage: 730 U, UNK
     Route: 042
     Dates: start: 20240626, end: 20240626
  2. ONCASPAR [Suspect]
     Active Substance: PEGASPARGASE
     Dosage: 700 U, UNK
     Route: 042
     Dates: start: 20240807, end: 20240807
  3. ONCASPAR [Suspect]
     Active Substance: PEGASPARGASE
     Dosage: 700 U, UNK
     Route: 042
     Dates: start: 20240829, end: 20240829
  4. ONCASPAR [Suspect]
     Active Substance: PEGASPARGASE
     Dosage: 700 U, UNK
     Route: 042
     Dates: start: 20240912, end: 20240912
  5. ACETAMINOPHEN [Concomitant]
     Active Substance: ACETAMINOPHEN
     Indication: Premedication
     Dosage: UNK
     Route: 065
     Dates: start: 20240807, end: 20240912
  6. CETIRIZINE [Concomitant]
     Active Substance: CETIRIZINE HYDROCHLORIDE
     Indication: Premedication
     Dosage: UNK
     Route: 065
     Dates: start: 20240807, end: 20240912
  7. DIPHENHYDRAMINE [Concomitant]
     Active Substance: DIPHENHYDRAMINE
     Indication: Premedication
     Dosage: UNK
     Route: 065
     Dates: start: 20240807, end: 20240912

REACTIONS (5)
  - Drug level decreased [Not Recovered/Not Resolved]
  - Pruritus [Recovered/Resolved]
  - Erythema [Recovered/Resolved]
  - Rash [Recovered/Resolved]
  - Oropharyngeal discomfort [Recovered/Resolved]

NARRATIVE: CASE EVENT DATE: 20240807
